FAERS Safety Report 7297615-2 (Version None)
Quarter: 2011Q1

REPORT INFORMATION
  Report Type: 
  Country: None (occurrence: None)
  Receive Date: 20110216
  Receipt Date: 20110202
  Transmission Date: 20110831
  Serious: Yes (Other)
  Sender: FDA-Public Use
  Company Number: DE-GENENTECH-311298

PATIENT
  Sex: Female

DRUGS (5)
  1. RITUXIMAB [Suspect]
     Indication: DIFFUSE LARGE B-CELL LYMPHOMA
     Dosage: 375 MG/M2, UNK
     Route: 042
     Dates: start: 20100916
  2. CYCLOPHOSPHAMIDE [Concomitant]
     Indication: DIFFUSE LARGE B-CELL LYMPHOMA
     Dosage: 910 MG, UNK
     Route: 042
  3. DOXORUBICIN [Concomitant]
     Indication: DIFFUSE LARGE B-CELL LYMPHOMA
     Dosage: UNK
     Route: 042
  4. BISOPROLOL [Concomitant]
     Indication: HYPERTENSION
     Dosage: UNK
     Route: 048
  5. VINCRISTINE [Concomitant]
     Indication: DIFFUSE LARGE B-CELL LYMPHOMA
     Dosage: 1 MG, UNK
     Route: 042

REACTIONS (5)
  - STEVENS-JOHNSON SYNDROME [None]
  - RASH ERYTHEMATOUS [None]
  - PRURITUS [None]
  - SKIN NECROSIS [None]
  - MUCOSAL INFLAMMATION [None]
